FAERS Safety Report 6030829-8 (Version None)
Quarter: 2009Q1

REPORT INFORMATION
  Report Type: 
  Country: None (occurrence: None)
  Receive Date: 20090106
  Receipt Date: 20081222
  Transmission Date: 20090719
  Serious: Yes (Hospitalization)
  Sender: FDA-Public Use
  Company Number: 08-002039

PATIENT
  Age: 62 Year
  Sex: Male

DRUGS (2)
  1. DORYX (DOXYCYCLINE) CAPSULE, 50MG [Suspect]
     Indication: SYSTEMIC LUPUS ERYTHEMATOSUS
     Dosage: 50 MG, QD, ORAL : 100 MG, QD, ORAL
     Route: 048
     Dates: start: 19860101
  2. TETRACYCLINE (TETRACYCLINE) UNKNOWN [Suspect]
     Indication: SYSTEMIC LUPUS ERYTHEMATOSUS
     Dosage: TOPICAL
     Route: 061

REACTIONS (18)
  - ANISOCYTOSIS [None]
  - ANOREXIA [None]
  - BLOOD VISCOSITY INCREASED [None]
  - LIP HAEMORRHAGE [None]
  - MALAISE [None]
  - MUSCULOSKELETAL PAIN [None]
  - MYOCARDIAL ISCHAEMIA [None]
  - NIGHT SWEATS [None]
  - NO THERAPEUTIC RESPONSE [None]
  - OBSTRUCTIVE AIRWAYS DISORDER [None]
  - PLATELET COUNT DECREASED [None]
  - RESTRICTIVE PULMONARY DISEASE [None]
  - SCAB [None]
  - SOMNOLENCE [None]
  - STEVENS-JOHNSON SYNDROME [None]
  - SYSTEMIC LUPUS ERYTHEMATOSUS [None]
  - VOMITING [None]
  - WEIGHT DECREASED [None]
